FAERS Safety Report 9052963 (Version 1)
Quarter: 2013Q1

REPORT INFORMATION
  Report Type: Spontaneous
  Country: JP (occurrence: JP)
  Receive Date: 20130208
  Receipt Date: 20130208
  Transmission Date: 20140127
  Serious: Yes (Other)
  Sender: FDA-Public Use
  Company Number: JP-009507513-1301JPN014338

PATIENT
  Age: 80 Year
  Sex: Male

DRUGS (6)
  1. BONALON [Suspect]
     Indication: OSTEOPOROSIS
     Dosage: 35 MG
     Route: 048
     Dates: start: 20090914
  2. ADJUST A [Concomitant]
     Route: 048
  3. ADONA [Concomitant]
     Route: 048
  4. CARNACULIN [Concomitant]
     Route: 048
  5. GLAKAY [Concomitant]
     Indication: OSTEOPOROSIS
     Route: 048
  6. ROCALTROL [Concomitant]
     Indication: OSTEOPOROSIS
     Route: 048

REACTIONS (1)
  - Myelodysplastic syndrome [Not Recovered/Not Resolved]
